FAERS Safety Report 5598256-5 (Version None)
Quarter: 2008Q1

REPORT INFORMATION
  Report Type: 
  Country: None (occurrence: None)
  Receive Date: 20080117
  Receipt Date: 20080117
  Transmission Date: 20080703
  Serious: No
  Sender: FDA-Public Use
  Company Number: None

PATIENT
  Age: 46 Year
  Sex: Female
  Weight: 57.1532 kg

DRUGS (2)
  1. GABAPENTIN [Suspect]
     Indication: INTERVERTEBRAL DISC DISORDER
     Dosage: 3 CAPSULES 3 X / DAY
     Dates: start: 20070501, end: 20071001
  2. GABAPENTIN [Suspect]
     Indication: NEURALGIA
     Dosage: 3 CAPSULES 3 X / DAY
     Dates: start: 20070501, end: 20071001

REACTIONS (1)
  - ALOPECIA [None]
